FAERS Safety Report 8988642 (Version 2)
Quarter: 2013Q2

REPORT INFORMATION
  Report Type: Report from Study
  Country: FR (occurrence: FR)
  Receive Date: 20121228
  Receipt Date: 20130429
  Transmission Date: 20140414
  Serious: Yes (Hospitalization)
  Sender: FDA-Public Use
  Company Number: FR-BAYER-2012-135090

PATIENT
  Age: 65 Year
  Sex: Female
  Weight: 63 kg

DRUGS (4)
  1. REGORAFENIB [Suspect]
     Indication: COLORECTAL CANCER
     Dosage: 160 MG, QD
     Route: 048
     Dates: start: 20121207, end: 20121218
  2. AVLOCARDYL [Concomitant]
     Indication: PORTAL HYPERTENSION
     Dosage: DAILY DOSE 80 MG
     Route: 048
     Dates: start: 200309
  3. ALDACTAZINE [Concomitant]
     Indication: PORTAL HYPERTENSION
     Dosage: DAILY DOSE 75 MG
     Route: 048
     Dates: start: 200909
  4. OMEPRAZOLE BAYER 10 MG [Concomitant]
     Indication: PROPHYLAXIS
     Dosage: DAILY DOSE 20 MG
     Route: 048
     Dates: start: 201207

REACTIONS (1)
  - Confusional state [Recovered/Resolved]
